FAERS Safety Report 7028228-5 (Version None)
Quarter: 2010Q3

REPORT INFORMATION
  Report Type: 
  Country: None (occurrence: None)
  Receive Date: 20100930
  Receipt Date: 20100915
  Transmission Date: 20110219
  Serious: Yes (Hospitalization)
  Sender: FDA-Public Use
  Company Number: 2010-3153

PATIENT
  Age: 66 Year
  Sex: Male

DRUGS (3)
  1. SOMATULINE DEPOT [Suspect]
     Indication: CHRONIC MYELOID LEUKAEMIA
     Dosage: 120 MG (120 MG,), INTRAMUSCULAR
     Route: 030
     Dates: start: 20090602
  2. SOMATULINE DEPOT [Suspect]
     Indication: METASTASES TO LIVER
     Dosage: 120 MG (120 MG,), INTRAMUSCULAR
     Route: 030
     Dates: start: 20090602
  3. SOMATULINE DEPOT [Suspect]
     Indication: PANCREATIC CARCINOMA
     Dosage: 120 MG (120 MG,), INTRAMUSCULAR
     Route: 030
     Dates: start: 20090602

REACTIONS (4)
  - DIARRHOEA [None]
  - MALIGNANT NEOPLASM PROGRESSION [None]
  - NAUSEA [None]
  - PANCREATIC CARCINOMA METASTATIC [None]
